FAERS Safety Report 7988708 (Version 2)
Quarter: 2012Q4

REPORT INFORMATION
  Report Type: 
  Country: CA (occurrence: CA)
  Receive Date: 20110613
  Receipt Date: 20121107
  Transmission Date: 20130627
  Serious: Yes (Death, Hospitalization, Other)
  Sender: FDA-Public Use
  Company Number: PHHO2005CA00707

PATIENT
  Sex: Female

DRUGS (14)
  1. SANDOSTATIN LAR [Suspect]
     Indication: CARCINOID TUMOUR
     Dosage: 40 mg
     Route: 030
     Dates: start: 20041028, end: 20050105
  2. SANDOSTATIN LAR [Suspect]
     Dosage: 90 mg, every 2 weeks
     Dates: end: 20051207
  3. SANDOSTATIN [Suspect]
     Indication: CARCINOID TUMOUR
  4. 5-FU [Concomitant]
     Dates: start: 200410
  5. RADIOTHERAPY [Concomitant]
  6. CORGARD [Concomitant]
  7. WARFARIN [Concomitant]
  8. HYDROCHLOROTHIAZIDE [Concomitant]
  9. LIPITOR [Concomitant]
  10. GRAVOL [Concomitant]
  11. VITAMIN B6 [Concomitant]
  12. MAGNESIUM [Concomitant]
  13. STEMETIL//PROCHLORPERAZINE [Concomitant]
  14. COUMADINE [Concomitant]

REACTIONS (17)
  - Malignant neoplasm progression [Fatal]
  - Platelet count decreased [Unknown]
  - Hypertension [Unknown]
  - Pyrexia [Unknown]
  - Bone marrow disorder [Unknown]
  - White blood cell count decreased [Unknown]
  - Full blood count decreased [Unknown]
  - Blood magnesium decreased [Unknown]
  - Haemoglobin decreased [Unknown]
  - Injection site reaction [Unknown]
  - Blood potassium decreased [Unknown]
  - Flushing [Unknown]
  - Hot flush [Unknown]
  - Diarrhoea [Unknown]
  - Fatigue [Unknown]
  - Nausea [Unknown]
  - Hyperglycaemia [Unknown]
